FAERS Safety Report 5038748-0 (Version None)
Quarter: 2006Q2

REPORT INFORMATION
  Report Type: 
  Country: None (occurrence: None)
  Receive Date: 20060629
  Receipt Date: 20050920
  Transmission Date: 20061013
  Serious: Yes (Hospitalization)
  Sender: FDA-Public Use
  Company Number: PHHO2005GB15279

PATIENT
  Sex: Male

DRUGS (3)
  1. MISOPROSTOL [Concomitant]
     Route: 064
  2. DINOPROSTONE [Concomitant]
     Route: 064
  3. SYNTOCINON [Suspect]
     Route: 064

REACTIONS (3)
  - CAESAREAN SECTION [None]
  - DRUG EXPOSURE DURING PREGNANCY [None]
  - FOETAL HEART RATE ABNORMAL [None]
